FAERS Safety Report 25339873 (Version 2)
Quarter: 2025Q2

REPORT INFORMATION
  Report Type: Report from Study
  Country: US (occurrence: US)
  Receive Date: 20250521
  Receipt Date: 20250623
  Transmission Date: 20250716
  Serious: No
  Sender: SUNOVION
  Company Number: US-SMPA-2025SPA005103AA

PATIENT

DRUGS (3)
  1. ORGOVYX [Suspect]
     Active Substance: RELUGOLIX
     Indication: Prostate cancer
     Route: 048
  2. ORGOVYX [Suspect]
     Active Substance: RELUGOLIX
     Dosage: 120 MG, QD, STARTED WITH BIOLOGICS
     Route: 048
     Dates: start: 20250409
  3. ERLEADA [Suspect]
     Active Substance: APALUTAMIDE
     Indication: Product used for unknown indication
     Route: 065

REACTIONS (6)
  - Hypersomnia [Unknown]
  - Decreased appetite [Unknown]
  - Taste disorder [Unknown]
  - Constipation [Unknown]
  - Fatigue [Unknown]
  - Therapy interrupted [Unknown]
